FAERS Safety Report 16874425 (Version 2)
Quarter: 2019Q4

REPORT INFORMATION
  Report Type: Report from Study
  Country: IN (occurrence: IN)
  Receive Date: 20191001
  Receipt Date: 20191215
  Transmission Date: 20200122
  Serious: Yes (Other)
  Sender: FDA-Public Use
  Company Number: IN-AMGEN-INDSL2019159218

PATIENT
  Age: 69 Year
  Sex: Male

DRUGS (1)
  1. REPATHA [Suspect]
     Active Substance: EVOLOCUMAB
     Indication: DYSLIPIDAEMIA
     Dosage: 140 MILLIGRAM, Q2WK
     Route: 058
     Dates: start: 20190608, end: 2019

REACTIONS (2)
  - Myositis [Recovered/Resolved]
  - Adverse event [Recovered/Resolved]

NARRATIVE: CASE EVENT DATE: 2019
